FAERS Safety Report 5957044-8 (Version None)
Quarter: 2008Q4

REPORT INFORMATION
  Report Type: 
  Country: None (occurrence: None)
  Receive Date: 20081118
  Receipt Date: 20081014
  Transmission Date: 20090506
  Serious: No
  Sender: FDA-Public Use
  Company Number: A0751797A

PATIENT
  Age: 56 Year
  Sex: Male

DRUGS (3)
  1. COREG CR [Suspect]
     Indication: HYPERTENSION
     Dosage: 10MG PER DAY
     Route: 048
     Dates: start: 20080101
  2. METFORMIN HCL [Concomitant]
  3. ASPIRIN [Concomitant]

REACTIONS (1)
  - HYPERHIDROSIS [None]
